FAERS Safety Report 6906977-4 (Version None)
Quarter: 2010Q3

REPORT INFORMATION
  Report Type: 
  Country: None (occurrence: None)
  Receive Date: 20100804
  Receipt Date: 20080417
  Transmission Date: 20110219
  Serious: No
  Sender: FDA-Public Use
  Company Number: US-PFIZER INC-2008025081

PATIENT
  Age: 18 Year
  Sex: Male

DRUGS (3)
  1. SELZENTRY [Suspect]
     Indication: HIV INFECTION
     Dates: start: 20080306
  2. TRUVADA [Concomitant]
  3. ISENTRESS [Concomitant]

REACTIONS (1)
  - DRY EYE [None]
